FAERS Safety Report 11635757 (Version 1)
Quarter: 2015Q4

REPORT INFORMATION
  Report Type: Spontaneous
  Country: DE (occurrence: None)
  Receive Date: 20151015
  Receipt Date: 20151015
  Transmission Date: 20160304
  Serious: Yes (Hospitalization)
  Sender: FDA-Public Use
  Company Number: None

PATIENT
  Sex: Male
  Weight: 69 kg

DRUGS (2)
  1. CYCLOSPORIN A [Concomitant]
     Active Substance: CYCLOSPORINE
  2. HARVONI [Suspect]
     Active Substance: LEDIPASVIR\SOFOSBUVIR
     Indication: HEPATITIS C
     Dosage: 90/400MG
     Route: 048
     Dates: start: 20150313, end: 20150827

REACTIONS (2)
  - Kidney transplant rejection [None]
  - Blood creatinine increased [None]

NARRATIVE: CASE EVENT DATE: 20150528
